FAERS Safety Report 4392632-4 (Version None)
Quarter: 2004Q3

REPORT INFORMATION
  Report Type: 
  Country: None (occurrence: None)
  Receive Date: 20040701
  Receipt Date: 20040616
  Transmission Date: 20050211
  Serious: No
  Sender: FDA-Public Use
  Company Number: F01200401354

PATIENT
  Age: 69 Year
  Sex: Male

DRUGS (5)
  1. OXALIPLATIN [Suspect]
     Indication: NON-SMALL CELL LUNG CANCER
     Dosage: 85 MG/M2 Q2W, INTRAVENOUS
     Route: 042
     Dates: start: 20040527, end: 20040527
  2. (VINORELBINE) - SOLUTION - 25 MG/M2 [Suspect]
     Dosage: 25 MG/M2 Q2W, INTRAVENOUS NOS
     Route: 042
     Dates: start: 20040526, end: 20040526
  3. (GEMCITABINE) - SOLUTION - 700 MG/M2 [Suspect]
     Dosage: 700 MG/M2  Q2W    , INTRAVENOUS NOS
     Route: 042
     Dates: start: 20040526, end: 20040526
  4. GLUCOPHAGE [Concomitant]
  5. TIMOLOL MALEATE [Concomitant]

REACTIONS (4)
  - FATIGUE [None]
  - GENERAL PHYSICAL HEALTH DETERIORATION [None]
  - PHLEBITIS [None]
  - WEIGHT DECREASED [None]
